FAERS Safety Report 21141930 (Version 1)
Quarter: 2022Q3

REPORT INFORMATION
  Report Type: Spontaneous
  Country: US (occurrence: None)
  Receive Date: 20220727
  Receipt Date: 20220727
  Transmission Date: 20221026
  Serious: Yes (Disabling)
  Sender: FDA-Public Use
  Company Number: None

PATIENT
  Age: 29 Year
  Sex: Male
  Weight: 67.5 kg

DRUGS (3)
  1. INVEGA SUSTENNA [Suspect]
     Active Substance: PALIPERIDONE PALMITATE
     Dates: start: 20220107, end: 20220727
  2. VITAMINS [Concomitant]
     Active Substance: VITAMINS
  3. omega-3 gummies [Concomitant]

REACTIONS (11)
  - Memory impairment [None]
  - Cognitive disorder [None]
  - Aphasia [None]
  - Feeling abnormal [None]
  - Disturbance in attention [None]
  - Headache [None]
  - Stress [None]
  - Memory impairment [None]
  - Emotional disorder [None]
  - Dementia [None]
  - Anhedonia [None]

NARRATIVE: CASE EVENT DATE: 20220603
